FAERS Safety Report 9855604 (Version 3)
Quarter: 2014Q3

REPORT INFORMATION
  Report Type: Spontaneous
  Country: US (occurrence: US)
  Receive Date: 20140130
  Receipt Date: 20140904
  Transmission Date: 20150326
  Serious: Yes (Hospitalization)
  Sender: FDA-Public Use
  Company Number: US-BAYER-2014-012622

PATIENT
  Age: 34 Year
  Sex: Female
  Weight: 102.4 kg

DRUGS (2)
  1. BENICAR HCT [Concomitant]
     Active Substance: HYDROCHLOROTHIAZIDE\OLMESARTAN MEDOXOMIL
     Indication: HYPERTENSION
     Dosage: UNK
     Dates: start: 2004
  2. MIRENA [Suspect]
     Active Substance: LEVONORGESTREL
     Indication: CONTRACEPTION
     Dosage: 20 MCG/24HR, CONT
     Route: 015
     Dates: start: 20090501, end: 20120309

REACTIONS (6)
  - Device issue [None]
  - Injury [None]
  - Embedded device [None]
  - Medical device discomfort [None]
  - Abdominal pain [None]
  - Medical device pain [None]

NARRATIVE: CASE EVENT DATE: 2009
